FAERS Safety Report 23307211 (Version 4)
Quarter: 2024Q1

REPORT INFORMATION
  Report Type: Report from Study
  Country: CA (occurrence: CA)
  Receive Date: 20231218
  Receipt Date: 20240311
  Transmission Date: 20240410
  Serious: Yes (Other)
  Sender: FDA-Public Use
  Company Number: CA-JNJFOC-20231137242

PATIENT
  Age: 79 Year
  Sex: Male

DRUGS (3)
  1. REMICADE [Suspect]
     Active Substance: INFLIXIMAB
     Indication: Colitis ulcerative
     Route: 041
  2. REMICADE [Suspect]
     Active Substance: INFLIXIMAB
     Route: 041
  3. REMICADE [Suspect]
     Active Substance: INFLIXIMAB
     Route: 041
     Dates: start: 20190917

REACTIONS (7)
  - Dementia Alzheimer^s type [Unknown]
  - Limb injury [Recovered/Resolved]
  - Face injury [Recovered/Resolved]
  - Wound complication [Not Recovered/Not Resolved]
  - COVID-19 [Recovered/Resolved]
  - Nail injury [Recovered/Resolved]
  - Skin lesion [Recovering/Resolving]

NARRATIVE: CASE EVENT DATE: 20231129
